FAERS Safety Report 5830321-7 (Version None)
Quarter: 2008Q3

REPORT INFORMATION
  Report Type: 
  Country: None (occurrence: None)
  Receive Date: 20080801
  Receipt Date: 20071129
  Transmission Date: 20090109
  Serious: Yes (Other)
  Sender: FDA-Public Use
  Company Number: PT-ROCHE-577828

PATIENT
  Age: 48 Year
  Sex: Male

DRUGS (5)
  1. ENFUVIRTIDE [Suspect]
     Route: 058
     Dates: start: 20051101, end: 20071129
  2. EMTRICITABINE/TENOFOVIR [Concomitant]
     Dosage: DRUG NAME: TDF (TENOFOVIR) + FTC (EMTRICITABINE), DOSAGE REGIMEN: ONE PER DAY
     Dates: start: 20051101
  3. EMTRICITABINE/TENOFOVIR [Concomitant]
     Dates: start: 20071129
  4. TIPRANAVIR [Concomitant]
     Dosage: DRUG NAME: TPV/RTV (TIPRANAVIR/RITONAVIR), DOSAGE REGIMEN: (2 + 2) + (2 + 2)
     Dates: start: 20051101
  5. TIPRANAVIR [Concomitant]
     Dates: start: 20071129

REACTIONS (1)
  - LUNG NEOPLASM [None]
